FAERS Safety Report 9641360 (Version 1)
Quarter: 2013Q4

REPORT INFORMATION
  Report Type: Spontaneous
  Country: US (occurrence: None)
  Receive Date: 20131022
  Receipt Date: 20131022
  Transmission Date: 20140711
  Serious: No
  Sender: FDA-Public Use
  Company Number: None

PATIENT
  Sex: Male

DRUGS (1)
  1. REVLIMID [Suspect]

REACTIONS (5)
  - Neuropathy peripheral [None]
  - Muscular weakness [None]
  - Back disorder [None]
  - Feeling cold [None]
  - Product substitution issue [None]
